FAERS Safety Report 9550107 (Version 1)
Quarter: 2013Q3

REPORT INFORMATION
  Report Type: Spontaneous
  Country: US (occurrence: US)
  Receive Date: 20130924
  Receipt Date: 20130924
  Transmission Date: 20140515
  Serious: No
  Sender: FDA-Public Use
  Company Number: US-009507513-1304USA004068

PATIENT
  Age: 32 Year
  Sex: Female

DRUGS (4)
  1. SAPHRIS [Suspect]
     Indication: BIPOLAR I DISORDER
     Dosage: 10 MG, BID
     Route: 060
  2. PAROXETINE [Concomitant]
  3. BUSPAR [Concomitant]
  4. SEROQUEL XR [Concomitant]

REACTIONS (1)
  - Exposure during pregnancy [Unknown]
